FAERS Safety Report 9777143 (Version 2)
Quarter: 2014Q1

REPORT INFORMATION
  Report Type: Spontaneous
  Country: BR (occurrence: BR)
  Receive Date: 20131221
  Receipt Date: 20140226
  Transmission Date: 20141002
  Serious: Yes (Hospitalization)
  Sender: FDA-Public Use
  Company Number: BR-ASTRAZENECA-2013SE91779

PATIENT
  Age: 77 Year
  Sex: Female

DRUGS (5)
  1. BRILINTA [Suspect]
     Indication: CHEST PAIN
     Route: 048
     Dates: start: 201306
  2. ATENOLOL [Suspect]
     Indication: HYPERTENSION
     Route: 048
     Dates: start: 201306
  3. MICARDIS [Concomitant]
     Indication: HYPERTENSION
     Dosage: DAILY
     Route: 048
  4. SYNTHROID [Concomitant]
     Dosage: DAILY
     Route: 048
  5. GALVUS [Concomitant]
     Indication: DIABETES MELLITUS
     Dosage: DAILY
     Route: 048

REACTIONS (1)
  - Gastrointestinal infection [Recovered/Resolved]
